FAERS Safety Report 6059851-2 (Version None)
Quarter: 2009Q1

REPORT INFORMATION
  Report Type: 
  Country: None (occurrence: None)
  Receive Date: 20090128
  Receipt Date: 20090112
  Transmission Date: 20090719
  Serious: Yes (Hospitalization)
  Sender: FDA-Public Use
  Company Number: 2009S1000533

PATIENT
  Age: 53 Year
  Sex: Male

DRUGS (7)
  1. CITALOPRAM HYDROBROMIDE [Suspect]
     Indication: ANXIETY DISORDER
     Dosage: 20 MG; DAILY; ORAL
     Route: 048
     Dates: start: 19990101, end: 20081213
  2. IBUPROFEN TABLETS [Suspect]
     Indication: PAIN
     Dosage: 400 MG; 3 TIMES A DAY; ORAL
     Route: 048
     Dates: start: 19940101, end: 20081213
  3. ACETAMINOPHEN W/ CODEINE [Concomitant]
  4. DIAZEPAM [Concomitant]
  5. LOTRIDERM /00008504/ [Concomitant]
  6. PEPTAC /00550802/ [Concomitant]
  7. SENNA [Concomitant]

REACTIONS (1)
  - PERFORATED ULCER [None]
